FAERS Safety Report 19078501 (Version 3)
Quarter: 2022Q1

REPORT INFORMATION
  Report Type: Spontaneous
  Country: ES (occurrence: ES)
  Receive Date: 20210331
  Receipt Date: 20220110
  Transmission Date: 20220423
  Serious: Yes (Hospitalization, Other)
  Sender: FDA-Public Use
  Company Number: ES-GLAXOSMITHKLINE-ES2021EME065785

PATIENT

DRUGS (6)
  1. MENVEO [Suspect]
     Active Substance: NEISSERIA MENINGITIDIS GROUP A CAPSULAR OLIGOSACCHARIDE DIPHTHERIA CRM197 PROTEIN CONJUGATE ANTIGEN\
     Indication: Prophylaxis
     Dates: start: 20170529
  2. MALARONE [Suspect]
     Active Substance: ATOVAQUONE\PROGUANIL HYDROCHLORIDE
     Indication: Product used for unknown indication
     Dosage: UNK
     Dates: start: 201708
  3. STAMARIL [Suspect]
     Active Substance: YELLOW FEVER VIRUS STRAIN 17D-204 LIVE ANTIGEN
     Indication: Prophylaxis
     Dosage: UNK
     Dates: start: 20170529
  4. TD [Suspect]
     Active Substance: CLOSTRIDIUM TETANI TOXOID ANTIGEN (FORMALDEHYDE INACTIVATED)\CORYNEBACTERIUM DIPHTHERIAE TOXOID ANTI
     Indication: Prophylaxis
     Dosage: UNK
     Dates: start: 20170707
  5. VIVOTIF [Suspect]
     Active Substance: SALMONELLA TYPHI TY21A LIVE ANTIGEN
     Indication: Product used for unknown indication
     Dosage: UNK
     Route: 048
     Dates: start: 20170623
  6. DUKORAL [Suspect]
     Active Substance: CHOLERA VACCINE
     Indication: Prophylaxis
     Dosage: UNK
     Dates: start: 20170703

REACTIONS (4)
  - Guillain-Barre syndrome [Recovered/Resolved with Sequelae]
  - Muscular weakness [Recovered/Resolved with Sequelae]
  - Gait disturbance [Recovered/Resolved with Sequelae]
  - Gastroenteritis [Recovered/Resolved with Sequelae]

NARRATIVE: CASE EVENT DATE: 20170801
